FAERS Safety Report 4395724-9 (Version None)
Quarter: 2004Q3

REPORT INFORMATION
  Report Type: 
  Country: None (occurrence: None)
  Receive Date: 20040708
  Receipt Date: 20040625
  Transmission Date: 20050211
  Serious: Yes (Hospitalization, Other)
  Sender: FDA-Public Use
  Company Number: 2004-0007163

PATIENT
  Age: 36 Year
  Sex: Male

DRUGS (4)
  1. VIREAD [Suspect]
     Indication: HIV INFECTION
     Dosage: 1 IN 1 D, ORAL
     Route: 048
     Dates: end: 20030329
  2. VIDEX EC [Concomitant]
  3. KALETRA [Concomitant]
  4. SUSTIVA [Concomitant]

REACTIONS (3)
  - DIABETES INSIPIDUS [None]
  - MENTAL DISORDER [None]
  - RENAL FAILURE [None]
